FAERS Safety Report 13455009 (Version 1)
Quarter: 2017Q2

REPORT INFORMATION
  Report Type: Report from Study
  Country: ES (occurrence: ES)
  Receive Date: 20170418
  Receipt Date: 20170418
  Transmission Date: 20170830
  Serious: Yes (Hospitalization)
  Sender: FDA-Public Use
  Company Number: ES-PFIZER INC-2017164997

PATIENT
  Age: 81 Year
  Sex: Male
  Weight: 83 kg

DRUGS (6)
  1. TYGACIL [Suspect]
     Active Substance: TIGECYCLINE
     Indication: POSTOPERATIVE WOUND INFECTION
     Dosage: 100 MG, 2X/DAY
     Route: 042
     Dates: start: 20130715
  2. CLINDAMYCIN PHOSPHATE. [Suspect]
     Active Substance: CLINDAMYCIN PHOSPHATE
     Indication: POSTOPERATIVE WOUND INFECTION
     Dosage: 600 MG, 3X/DAY
     Route: 042
     Dates: start: 20130709, end: 20130710
  3. CEFTRIAXONE. [Suspect]
     Active Substance: CEFTRIAXONE
     Indication: POSTOPERATIVE WOUND INFECTION
     Dosage: UNK
     Route: 042
     Dates: start: 20130805, end: 20130807
  4. COTRIMOXAZOL [Suspect]
     Active Substance: SULFAMETHOXAZOLE\TRIMETHOPRIM
     Indication: POSTOPERATIVE WOUND INFECTION
     Dosage: UNK
     Route: 042
     Dates: start: 20130722, end: 20130807
  5. PIPERACILINA TAZOBACTAM SALA [Suspect]
     Active Substance: PIPERACILLIN SODIUM\TAZOBACTAM SODIUM
     Indication: POSTOPERATIVE WOUND INFECTION
     Dosage: 4 G, 3X/DAY
     Route: 042
     Dates: start: 20130702, end: 20130719
  6. MEROPENEM. [Suspect]
     Active Substance: MEROPENEM
     Indication: POSTOPERATIVE WOUND INFECTION
     Dosage: 1 G, 3X/DAY
     Route: 042
     Dates: start: 20130709, end: 20130805

REACTIONS (1)
  - Drug reaction with eosinophilia and systemic symptoms [Recovered/Resolved]

NARRATIVE: CASE EVENT DATE: 20130805
